FAERS Safety Report 14603474 (Version 2)
Quarter: 2018Q1

REPORT INFORMATION
  Report Type: Spontaneous
  Country: JP (occurrence: JP)
  Receive Date: 20180306
  Receipt Date: 20180309
  Transmission Date: 20180509
  Serious: Yes (Hospitalization)
  Sender: FDA-Public Use
  Company Number: PHJP2018JP004525

PATIENT
  Age: 30 Year
  Sex: Female

DRUGS (6)
  1. SELENICA-R [Concomitant]
     Active Substance: VALPROATE SODIUM
     Indication: EPILEPSY
     Dosage: 200 MG, UNK
     Route: 048
  2. VOLTAREN [Suspect]
     Active Substance: DICLOFENAC SODIUM
     Dosage: 25 MG, UNK
     Route: 048
  3. VOLTAREN [Suspect]
     Active Substance: DICLOFENAC SODIUM
     Indication: FRACTURE PAIN
     Dosage: UNK, PRN (ONLY AT THE TIME OF PAIN)
     Route: 048
  4. VOLTAREN [Suspect]
     Active Substance: DICLOFENAC SODIUM
     Dosage: UNK UNK, TID
     Route: 048
  5. DEPAKENE [Concomitant]
     Active Substance: VALPROIC ACID
     Indication: EPILEPSY
     Dosage: 100 MG, UNK
     Route: 048
  6. VOLTAREN SUP [Suspect]
     Active Substance: DICLOFENAC SODIUM
     Indication: FRACTURE PAIN
     Dosage: UNK, PRN (ONLY AT THE TIME OF PAIN)
     Route: 054

REACTIONS (2)
  - Maternal exposure during breast feeding [Unknown]
  - Back pain [Recovering/Resolving]
